FAERS Safety Report 4865581-2 (Version None)
Quarter: 2005Q4

REPORT INFORMATION
  Report Type: 
  Country: None (occurrence: None)
  Receive Date: 20051220
  Receipt Date: 20051209
  Transmission Date: 20060501
  Serious: Yes (Hospitalization)
  Sender: FDA-Public Use
  Company Number: 236175K05USA

PATIENT
  Age: 59 Year
  Sex: Male

DRUGS (1)
  1. REBIF [Suspect]
     Indication: MULTIPLE SCLEROSIS
     Dates: start: 20050919

REACTIONS (3)
  - CONDITION AGGRAVATED [None]
  - HAEMORRHAGE [None]
  - MASS [None]
